FAERS Safety Report 6177694-6 (Version None)
Quarter: 2009Q2

REPORT INFORMATION
  Report Type: 
  Country: None (occurrence: None)
  Receive Date: 20090504
  Receipt Date: 20090429
  Transmission Date: 20091009
  Serious: Yes (Hospitalization)
  Sender: FDA-Public Use
  Company Number: NL-ROXANE LABORATORIES, INC.-2009-RO-00421RO

PATIENT
  Age: 62 Year
  Sex: Female

DRUGS (2)
  1. FLECAINIDE ACETATE [Suspect]
     Indication: ATRIAL FIBRILLATION
     Dosage: 150MG
     Route: 042
  2. METOPROLOL TARTRATE [Suspect]
     Indication: ATRIAL FIBRILLATION
     Dosage: 50MG

REACTIONS (8)
  - ATRIAL FIBRILLATION [None]
  - ATRIAL FLUTTER [None]
  - BRUGADA SYNDROME [None]
  - LOSS OF CONSCIOUSNESS [None]
  - NODAL RHYTHM [None]
  - SINUS ARREST [None]
  - SINUS BRADYCARDIA [None]
  - SINUS TACHYCARDIA [None]
